FAERS Safety Report 11622984 (Version 1)
Quarter: 2015Q4

REPORT INFORMATION
  Report Type: Spontaneous
  Country: US (occurrence: US)
  Receive Date: 20151013
  Receipt Date: 20151013
  Transmission Date: 20160304
  Serious: No
  Sender: FDA-Public Use
  Company Number: US-JNJFOC-20150312386

PATIENT
  Age: 68 Year
  Sex: Male
  Weight: 99.79 kg

DRUGS (3)
  1. ACETAMINOPHEN W/OXYCODONE [Concomitant]
     Active Substance: ACETAMINOPHEN\OXYCODONE HYDROCHLORIDE
     Dosage: OXYCODONE WITH 325MG OF ACETAMINOPHEN
  2. TYLENOL EXTRA STRENGTH [Suspect]
     Active Substance: ACETAMINOPHEN
     Indication: ARTHRITIS
     Dosage: 1 TABLET, SOMETIMES 2 TABLETS
     Route: 048
     Dates: start: 20150312, end: 20150312
  3. TYLENOL EXTRA STRENGTH [Suspect]
     Active Substance: ACETAMINOPHEN
     Indication: ARTHRALGIA
     Dosage: 1 TABLET, SOMETIMES 2 TABLETS
     Route: 048
     Dates: start: 20150312, end: 20150312

REACTIONS (2)
  - Incorrect dose administered [Unknown]
  - Contraindicated drug administered [Unknown]
